FAERS Safety Report 9461249 (Version 4)
Quarter: 2014Q1

REPORT INFORMATION
  Report Type: Spontaneous
  Country: US (occurrence: US)
  Receive Date: 20130816
  Receipt Date: 20140210
  Transmission Date: 20141002
  Serious: No
  Sender: FDA-Public Use
  Company Number: US-PFIZER INC-2013236626

PATIENT
  Age: 62 Year
  Sex: Male

DRUGS (13)
  1. LYRICA [Suspect]
     Dosage: 300 MG, 2X/DAY (2 CAPSULE BID)
     Route: 048
  2. GLIMEPIRIDE [Concomitant]
     Dosage: 4 MG, 2X/DAY
  3. GLUCOPHAGE [Concomitant]
     Dosage: 1000 MG, 2X/DAY
  4. LISINOPRIL [Concomitant]
     Dosage: 40 MG, 1X/DAY
  5. HUMALOG MIX PEN [Concomitant]
     Dosage: 28 IU AT BREAKFAST, 32 UNITS AT SUPPER (GIVE AS YOU SIT TO EAT)
  6. CYMBALTA [Concomitant]
     Indication: NEURALGIA
     Dosage: 60 MG, 1X/DAY (Q AM)
  7. CYMBALTA [Concomitant]
     Indication: PAIN IN EXTREMITY
  8. IBUPROFEN [Concomitant]
     Dosage: 200 MG, AS NEEDED (PRN)
  9. PRAVASTATIN SODIUM [Concomitant]
     Dosage: 20 MG, 1X/DAY (EVERY EVENING)
  10. LEVOTHYROXINE SODIUM [Concomitant]
     Dosage: 50 UG, 1X/DAY
  11. LORATADINE [Concomitant]
     Indication: HYPERSENSITIVITY
     Dosage: 10 MG, AS NEEDED 1X/DAY
  12. OMEPRAZOLE [Concomitant]
     Dosage: 20 MG, 1X/DAY
  13. AMITRIPTYLINE HYDROCHLORIDE [Concomitant]
     Dosage: 25 MG, 1X/DAY (AT BEDTIME)

REACTIONS (1)
  - Pain [Unknown]
